FAERS Safety Report 6344643-7 (Version None)
Quarter: 2009Q3

REPORT INFORMATION
  Report Type: 
  Country: None (occurrence: None)
  Receive Date: 20090903
  Receipt Date: 20090820
  Transmission Date: 20100115
  Serious: Yes (Death, Hospitalization)
  Sender: FDA-Public Use
  Company Number: AUR-APU-2009-00474

PATIENT
  Age: 56 Year
  Sex: Male

DRUGS (4)
  1. SIMVASTATIN [Suspect]
     Indication: BLOOD CHOLESTEROL INCREASED
     Dosage: 10 MG, DAILY
     Dates: start: 20070701, end: 20070801
  2. SIMVASTATIN [Suspect]
     Indication: BLOOD TRIGLYCERIDES INCREASED
     Dosage: 10 MG, DAILY
     Dates: start: 20070701, end: 20070801
  3. TACROLIMUS [Suspect]
     Indication: IMMUNOSUPPRESSION
     Dates: start: 20070401, end: 20070801
  4. RAPAMYCIN [Suspect]
     Indication: IMMUNOSUPPRESSION
     Dates: start: 20070701, end: 20070801

REACTIONS (17)
  - ABASIA [None]
  - AREFLEXIA [None]
  - ASTHENIA [None]
  - BIOPSY LIVER ABNORMAL [None]
  - COMPLICATIONS OF TRANSPLANTED LIVER [None]
  - DIALYSIS [None]
  - DISEASE RECURRENCE [None]
  - DRUG INTERACTION [None]
  - HEPATITIS C [None]
  - HYPERTENSION [None]
  - LIVER TRANSPLANT REJECTION [None]
  - MALAISE [None]
  - MYALGIA [None]
  - QUADRIPARESIS [None]
  - RENAL FAILURE [None]
  - RESPIRATORY FAILURE [None]
  - VENTRICULAR FIBRILLATION [None]
